FAERS Safety Report 4465307-0 (Version None)
Quarter: 2004Q4

REPORT INFORMATION
  Report Type: 
  Country: None (occurrence: None)
  Receive Date: 20041004
  Receipt Date: 20030605
  Transmission Date: 20050328
  Serious: Yes (Hospitalization, Disabling)
  Sender: FDA-Public Use
  Company Number: US-MERCK-0306USA00831

PATIENT
  Age: 54 Year
  Sex: Female

DRUGS (1)
  1. VIOXX [Suspect]
     Route: 048

REACTIONS (20)
  - ACUTE SINUSITIS [None]
  - ADVERSE EVENT [None]
  - ASTHENIA [None]
  - ATELECTASIS [None]
  - BREAST CANCER STAGE I [None]
  - CHEST PAIN [None]
  - DEHYDRATION [None]
  - DYSPHAGIA [None]
  - GASTRITIS [None]
  - HYPERTENSION [None]
  - HYPERTHYROIDISM [None]
  - HYPOKALAEMIA [None]
  - HYPOTHYROIDISM [None]
  - LUNG NEOPLASM [None]
  - NEUROPATHY [None]
  - ORTHOSTATIC HYPOTENSION [None]
  - PALPITATIONS [None]
  - VESTIBULAR NEURONITIS [None]
  - VIRAL UPPER RESPIRATORY TRACT INFECTION [None]
  - WEIGHT DECREASED [None]
